FAERS Safety Report 24020639 (Version 1)
Quarter: 2024Q2

REPORT INFORMATION
  Report Type: Spontaneous
  Country: US (occurrence: US)
  Receive Date: 20240627
  Receipt Date: 20240627
  Transmission Date: 20240716
  Serious: Yes (Hospitalization, Other)
  Sender: FDA-Public Use
  Company Number: US-DRL-USA-LIT/USA/24/0008991

PATIENT
  Age: 60 Year
  Sex: Male

DRUGS (1)
  1. DAPTOMYCIN [Suspect]
     Active Substance: DAPTOMYCIN
     Indication: Osteomyelitis bacterial
     Dosage: 850 MG EVERY 48 HOURS FOR 20 DAYS

REACTIONS (2)
  - Eosinophilic pneumonia [Unknown]
  - Product use in unapproved indication [Unknown]
